FAERS Safety Report 6762822-1 (Version None)
Quarter: 2010Q2

REPORT INFORMATION
  Report Type: 
  Country: None (occurrence: None)
  Receive Date: 20100609
  Receipt Date: 20100601
  Transmission Date: 20101027
  Serious: Yes (Other)
  Sender: FDA-Public Use
  Company Number: US-GILEAD-2010-0027949

PATIENT
  Sex: Female

DRUGS (4)
  1. LETAIRIS [Suspect]
     Indication: PULMONARY ARTERIAL HYPERTENSION
     Route: 048
     Dates: start: 20090302, end: 20100225
  2. LETAIRIS [Suspect]
     Route: 048
     Dates: start: 20080527, end: 20090301
  3. LETAIRIS [Suspect]
     Route: 048
     Dates: start: 20080430, end: 20080526
  4. BALSALAZIDE [Concomitant]
     Indication: COLITIS ULCERATIVE

REACTIONS (1)
  - HEPATIC ENZYME INCREASED [None]
